FAERS Safety Report 6836994-4 (Version None)
Quarter: 2010Q3

REPORT INFORMATION
  Report Type: 
  Country: None (occurrence: None)
  Receive Date: 20100713
  Receipt Date: 20100706
  Transmission Date: 20110219
  Serious: Yes (Hospitalization)
  Sender: FDA-Public Use
  Company Number: PHHO2009JP15975

PATIENT
  Sex: Male
  Weight: 48 kg

DRUGS (14)
  1. CERTICAN [Suspect]
     Indication: RENAL TRANSPLANT
     Dosage: UNK
     Route: 048
     Dates: start: 20080522
  2. NEORAL [Suspect]
     Indication: RENAL TRANSPLANT
     Dosage: 100 MG DAILY
     Route: 048
     Dates: start: 20080518
  3. SANDIMMUNE [Concomitant]
     Route: 042
  4. SIMULECT [Concomitant]
     Dosage: 20 MG, ONCE/SINGLE
     Route: 042
  5. PREDONINE [Concomitant]
     Indication: RENAL TRANSPLANT
  6. RABEPRAZOLE SODIUM [Concomitant]
     Indication: GASTRITIS PROPHYLAXIS
  7. ASPIRIN [Concomitant]
  8. COTRIM [Concomitant]
     Indication: INFECTION PROPHYLAXIS
  9. ADALAT [Concomitant]
     Indication: HYPERTENSION
  10. AMLODIN [Concomitant]
     Indication: HYPERTENSION
  11. ALLOID [Concomitant]
     Indication: GASTRITIS PROPHYLAXIS
  12. TAMSULOSIN HYDROCHLORIDE [Concomitant]
     Indication: BENIGN PROSTATIC HYPERPLASIA
  13. ALOSENN [Concomitant]
     Indication: CONSTIPATION
  14. FLUVASTATIN [Concomitant]
     Indication: HYPERCHOLESTEROLAEMIA

REACTIONS (3)
  - MALAISE [None]
  - OEDEMA PERIPHERAL [None]
  - PROTEINURIA [None]
